FAERS Safety Report 7083377-0 (Version None)
Quarter: 2010Q4

REPORT INFORMATION
  Report Type: 
  Country: None (occurrence: None)
  Receive Date: 20101104
  Receipt Date: 20101027
  Transmission Date: 20110411
  Serious: Yes (Other)
  Sender: FDA-Public Use
  Company Number: B0665521A

PATIENT
  Sex: Female

DRUGS (2)
  1. ALLI [Suspect]
     Route: 048
     Dates: start: 20091201, end: 20100604
  2. THYROXIN [Concomitant]
     Route: 065

REACTIONS (2)
  - HYPOTHYROIDISM [None]
  - MALABSORPTION [None]
